FAERS Safety Report 9912679 (Version 1)
Quarter: 2014Q1

REPORT INFORMATION
  Report Type: Spontaneous
  Country: US (occurrence: None)
  Receive Date: 20140218
  Receipt Date: 20140218
  Transmission Date: 20141002
  Serious: Yes (Disabling)
  Sender: FDA-Public Use
  Company Number: None

PATIENT
  Age: 33 Year
  Sex: Female
  Weight: 54.43 kg

DRUGS (1)
  1. ZOLPIDEM [Suspect]
     Indication: INSOMNIA
     Dosage: AT BEDTIME, TAKEN BY MOUTH
     Dates: start: 20131215, end: 20131217

REACTIONS (24)
  - Poor quality sleep [None]
  - Muscle twitching [None]
  - Dysuria [None]
  - Hallucination [None]
  - Psychomotor hyperactivity [None]
  - Agitation [None]
  - Hallucination, auditory [None]
  - Hallucination, visual [None]
  - Agitation [None]
  - Mobility decreased [None]
  - Anosmia [None]
  - Hypoaesthesia [None]
  - Malaise [None]
  - Feeling abnormal [None]
  - Female sexual arousal disorder [None]
  - Female orgasmic disorder [None]
  - Orgasmic sensation decreased [None]
  - Genitals enlarged [None]
  - Hypersensitivity [None]
  - Feeling of body temperature change [None]
  - Breast enlargement [None]
  - Breast pain [None]
  - Economic problem [None]
  - Brain injury [None]
